FAERS Safety Report 22787246 (Version 2)
Quarter: 2023Q4

REPORT INFORMATION
  Report Type: Spontaneous
  Country: US (occurrence: US)
  Receive Date: 20230804
  Receipt Date: 20231016
  Transmission Date: 20240110
  Serious: Yes (Other)
  Sender: FDA-Public Use
  Company Number: US-BAYER-2023A105970

PATIENT
  Age: 32 Year
  Sex: Female
  Weight: 48 kg

DRUGS (1)
  1. MIRENA [Suspect]
     Active Substance: LEVONORGESTREL
     Indication: Contraception
     Dosage: 20?G/DAY
     Route: 015
     Dates: start: 20230418

REACTIONS (3)
  - Device dislocation [Not Recovered/Not Resolved]
  - Abdominal pain lower [None]
  - Device issue [None]

NARRATIVE: CASE EVENT DATE: 20230622
